FAERS Safety Report 5611746-1 (Version None)
Quarter: 2008Q1

REPORT INFORMATION
  Report Type: 
  Country: None (occurrence: None)
  Receive Date: 20080204
  Receipt Date: 20080124
  Transmission Date: 20080703
  Serious: Yes (Other)
  Sender: FDA-Public Use
  Company Number: CH-BAYER-200810783GPV

PATIENT
  Age: 39 Year
  Sex: Female

DRUGS (2)
  1. MIRENA [Suspect]
     Indication: DRUG USE FOR UNKNOWN INDICATION
     Dosage: TOTAL DAILY DOSE: 20 ?G
     Route: 015
     Dates: start: 20000101, end: 20080101
  2. VENTO DISC (NOS) [Concomitant]
     Indication: ASTHMA
     Route: 055

REACTIONS (1)
  - BREAST CANCER FEMALE [None]
